FAERS Safety Report 9316207 (Version 2)
Quarter: 2013Q2

REPORT INFORMATION
  Report Type: Report from Study
  Country: JP (occurrence: JP)
  Receive Date: 20130530
  Receipt Date: 20130531
  Transmission Date: 20140414
  Serious: Yes (Death, Hospitalization)
  Sender: FDA-Public Use
  Company Number: PHHO2010JP19709

PATIENT
  Age: 29 Year
  Sex: Male
  Weight: 49 kg

DRUGS (19)
  1. CGP 57148B [Suspect]
     Indication: PULMONARY ARTERIAL HYPERTENSION
     Dosage: 200 MG, UNK
     Route: 048
     Dates: start: 20101125, end: 20101128
  2. CGP 57148B [Suspect]
     Dosage: 200 MG, UNK
     Route: 048
     Dates: start: 20101209, end: 20110207
  3. ALDACTONE [Concomitant]
     Indication: PULMONARY HYPERTENSION
     Dosage: 50 MG
     Route: 048
     Dates: start: 20090521
  4. LASIX [Concomitant]
     Indication: PULMONARY HYPERTENSION
     Dosage: 40 MG
     Route: 048
     Dates: start: 20090521
  5. FLOLAN [Concomitant]
     Indication: PULMONARY HYPERTENSION
     Dosage: UNK
     Route: 042
     Dates: start: 20100810
  6. TRACLEER [Concomitant]
     Indication: PULMONARY HYPERTENSION
     Dosage: 250 MG
     Route: 048
     Dates: start: 200803
  7. REVATIO [Concomitant]
     Indication: PULMONARY HYPERTENSION
     Dosage: 60 MG
     Route: 048
     Dates: start: 200706
  8. OMEPRAL [Concomitant]
     Indication: ABDOMINAL PAIN
     Dosage: 40 MG
     Route: 042
     Dates: start: 20130520
  9. ATARAX-P [Concomitant]
     Indication: ABDOMINAL PAIN
     Dosage: UNK
     Route: 042
     Dates: start: 20130521
  10. ADOAIR [Concomitant]
     Indication: ASTHMA
     Dosage: UNK
     Dates: start: 20101125
  11. SEFIROM [Concomitant]
     Indication: INFECTION
     Dosage: 2 G
     Route: 042
     Dates: start: 20130521
  12. CADEX [Concomitant]
     Indication: DEVICE RELATED INFECTION
     Dosage: UNK
     Route: 048
     Dates: start: 20101209, end: 20101222
  13. SERENACE [Concomitant]
     Indication: RESTLESSNESS
     Dosage: UNK
     Route: 042
     Dates: start: 20130521
  14. BIOFERMIN [Concomitant]
     Indication: DIARRHOEA
     Dosage: 3 DF, UNK
     Route: 048
     Dates: start: 200706
  15. PANSPORIN T [Concomitant]
     Indication: DEVICE RELATED INFECTION
     Dosage: 600 MG
     Route: 048
     Dates: start: 20101220, end: 20101222
  16. LAC B [Concomitant]
     Indication: DIARRHOEA
     Dosage: 3 G
     Route: 048
     Dates: start: 200706
  17. KIPRES [Concomitant]
     Indication: ASTHMA
     Dosage: 1 DF, UNK
     Route: 048
     Dates: start: 20101125
  18. FLUTICASONE PROPIONATE, SALMETEROL XINAFOATE [Concomitant]
     Indication: ASTHMA
     Dosage: UNK
     Dates: start: 20101125
  19. ULCERLMIN [Concomitant]
     Dosage: UNK
     Route: 048
     Dates: start: 200706

REACTIONS (10)
  - Lymphoma [Fatal]
  - Cardiac failure [Fatal]
  - Disease progression [Fatal]
  - Device related infection [Recovered/Resolved]
  - Catheter site swelling [Recovered/Resolved]
  - Instillation site foreign body sensation [Recovered/Resolved]
  - Application site pain [Recovered/Resolved]
  - Erythema [Recovered/Resolved]
  - Inflammation [Recovered/Resolved]
  - Platelet count decreased [Recovered/Resolved]
